FAERS Safety Report 5139937-7 (Version None)
Quarter: 2006Q4

REPORT INFORMATION
  Report Type: 
  Country: None (occurrence: None)
  Receive Date: 20061031
  Receipt Date: 20041203
  Transmission Date: 20070319
  Serious: Yes (Hospitalization, Other)
  Sender: FDA-Public Use
  Company Number: US-ELI_LILLY_AND_COMPANY-US_0501109704

PATIENT
  Age: 37 Year
  Sex: Male
  Weight: 111 kg

DRUGS (5)
  1. PAROXETINE HCL [Concomitant]
     Dates: start: 19980101, end: 19990101
  2. TEGRETOL [Concomitant]
     Dates: start: 19980101
  3. DEPAKOTE [Concomitant]
     Dates: start: 19970101, end: 19980101
  4. ZYPREXA [Suspect]
     Indication: BIPOLAR DISORDER
     Dosage: 20 MG, UNK
     Dates: start: 19980117, end: 19980813
  5. ZYPREXA [Suspect]
     Dosage: 10 MG, UNKNOWN
     Dates: start: 19980101, end: 19980813

REACTIONS (8)
  - DIABETES MELLITUS [None]
  - DIABETIC COMA [None]
  - DIABETIC KETOACIDOSIS [None]
  - ENCEPHALOPATHY [None]
  - HYPERGLYCAEMIA [None]
  - HYPERTENSION [None]
  - RENAL FAILURE [None]
  - RESPIRATORY FAILURE [None]
